FAERS Safety Report 14412721 (Version 2)
Quarter: 2018Q1

REPORT INFORMATION
  Report Type: Spontaneous
  Country: JP (occurrence: JP)
  Receive Date: 20180119
  Receipt Date: 20180125
  Transmission Date: 20180509
  Serious: Yes (Death)
  Sender: FDA-Public Use
  Company Number: JP-EISAI MEDICAL RESEARCH-EC-2017-033071

PATIENT
  Age: 97 Year
  Sex: Female

DRUGS (3)
  1. LENVIMA [Suspect]
     Active Substance: LENVATINIB
     Route: 048
     Dates: start: 20171114, end: 20171224
  2. LENVIMA [Suspect]
     Active Substance: LENVATINIB
     Indication: ANAPLASTIC THYROID CANCER
     Route: 048
     Dates: start: 20171013, end: 20171113
  3. LENVIMA [Suspect]
     Active Substance: LENVATINIB
     Route: 048
     Dates: start: 20171225, end: 20180112

REACTIONS (6)
  - Malignant neoplasm progression [Fatal]
  - Hypertension [Recovering/Resolving]
  - Sepsis [Fatal]
  - Fistula [Recovering/Resolving]
  - Pneumonia [Fatal]
  - Hypertonic bladder [Unknown]

NARRATIVE: CASE EVENT DATE: 2017
